FAERS Safety Report 4960402-1 (Version None)
Quarter: 2006Q1

REPORT INFORMATION
  Report Type: 
  Country: None (occurrence: None)
  Receive Date: 20060328
  Receipt Date: 20060317
  Transmission Date: 20060701
  Serious: Yes (Death, Hospitalization, Other)
  Sender: FDA-Public Use
  Company Number: 2006037805

PATIENT
  Age: 71 Year
  Sex: Male

DRUGS (2)
  1. LIPITOR [Suspect]
     Indication: ILL-DEFINED DISORDER
  2. ASPIRIN [Suspect]
     Indication: ISCHAEMIC HEART DISEASE PROPHYLAXIS
     Dosage: 81 MG (81 MG, 1 IN 1 D), ORAL
     Route: 048
     Dates: start: 20000101

REACTIONS (8)
  - ARTERIAL OCCLUSIVE DISEASE [None]
  - BRAIN STEM THROMBOSIS [None]
  - CARDIO-RESPIRATORY ARREST [None]
  - DIARRHOEA [None]
  - DIVERTICULUM [None]
  - HAEMORRHAGE [None]
  - MITRAL VALVE PROLAPSE [None]
  - SUDDEN DEATH [None]
